FAERS Safety Report 15960529 (Version 1)
Quarter: 2019Q1

REPORT INFORMATION
  Report Type: Spontaneous
  Country: US (occurrence: US)
  Receive Date: 20190213
  Receipt Date: 20190213
  Transmission Date: 20190417
  Serious: Yes (Disabling, Other)
  Sender: FDA-Public Use
  Company Number: None

PATIENT
  Age: 32 Year
  Sex: Female
  Weight: 65.25 kg

DRUGS (3)
  1. CLONAZEPAM 0.5 MG TABLET [Suspect]
     Active Substance: CLONAZEPAM
     Indication: ANXIETY DISORDER
     Dates: start: 20190208
  2. CLONAZEPAM 0.5 MG TABLET [Suspect]
     Active Substance: CLONAZEPAM
     Indication: PANIC DISORDER
     Dates: start: 20190208
  3. ESCITALOPRAM [Concomitant]
     Active Substance: ESCITALOPRAM OXALATE

REACTIONS (6)
  - Gastrointestinal pain [None]
  - Product substitution issue [None]
  - Headache [None]
  - Irritability [None]
  - Psychomotor hyperactivity [None]
  - Anxiety [None]

NARRATIVE: CASE EVENT DATE: 20190211
